FAERS Safety Report 15227999 (Version 1)
Quarter: 2018Q3

REPORT INFORMATION
  Report Type: Report from Study
  Country: US (occurrence: US)
  Receive Date: 20180801
  Receipt Date: 20180801
  Transmission Date: 20181010
  Serious: No
  Sender: FDA-Public Use
  Company Number: US-AMGEN-USASL2018104034

PATIENT
  Age: 73 Year
  Sex: Female

DRUGS (5)
  1. ENBREL [Suspect]
     Active Substance: ETANERCEPT
     Indication: TYPE V HYPERLIPIDAEMIA
     Dosage: 140 MG, Q2WK
     Route: 065
  2. ENBREL [Suspect]
     Active Substance: ETANERCEPT
     Indication: HYPERLIPIDAEMIA
  3. ENBREL [Suspect]
     Active Substance: ETANERCEPT
     Indication: HYPERTENSION
  4. ENBREL [Suspect]
     Active Substance: ETANERCEPT
     Indication: ARTERIOSCLEROSIS
  5. ENBREL [Suspect]
     Active Substance: ETANERCEPT
     Indication: CAROTID ARTERY RESTENOSIS

REACTIONS (2)
  - Off label use [Unknown]
  - Muscle spasms [Recovered/Resolved]

NARRATIVE: CASE EVENT DATE: 201807
